FAERS Safety Report 8775281 (Version 3)
Quarter: 2018Q4

REPORT INFORMATION
  Report Type: Report from Study
  Country: GB (occurrence: GB)
  Receive Date: 20120909
  Receipt Date: 20181010
  Transmission Date: 20190205
  Serious: Yes (Hospitalization)
  Sender: FDA-Public Use
  Company Number: GB-009507513-1206USA02182

PATIENT
  Age: 25 Year
  Sex: Female

DRUGS (8)
  1. EPZICOM [Suspect]
     Active Substance: ABACAVIR SULFATE\LAMIVUDINE
     Dosage: 1 TAB/CAPS, QD
     Route: 048
     Dates: start: 20120305, end: 20120319
  2. RALTEGRAVIR POTASSIUM [Suspect]
     Active Substance: RALTEGRAVIR POTASSIUM
     Indication: HIV INFECTION
     Dosage: 800 MG, QD
     Route: 048
     Dates: start: 20100713, end: 20111108
  3. TRUVADA [Suspect]
     Active Substance: EMTRICITABINE\TENOFOVIR DISOPROXIL FUMARATE
     Dosage: 1 TAB/CAPS, QD
     Route: 048
     Dates: start: 20100713, end: 20111108
  4. SELZENTRY [Suspect]
     Active Substance: MARAVIROC
     Dosage: 300 MG, QD
     Route: 048
     Dates: start: 20100713, end: 20111108
  5. KALETRA [Suspect]
     Active Substance: LOPINAVIR\RITONAVIR
     Dosage: 2 TAB/CAPS, QD
     Route: 048
     Dates: start: 20120305, end: 20120319
  6. PREZISTA [Suspect]
     Active Substance: DARUNAVIR ETHANOLATE
     Dosage: 800 MG, QD
     Route: 048
     Dates: start: 20100713, end: 20111108
  7. COMBIVIR [Suspect]
     Active Substance: LAMIVUDINE\ZIDOVUDINE
     Dosage: 2 TAB/CAPS, QD
     Route: 048
     Dates: start: 20120319
  8. NORVIR [Suspect]
     Active Substance: RITONAVIR
     Dosage: 100 MG, QD
     Route: 048
     Dates: start: 20100713, end: 20111108

REACTIONS (2)
  - Exposure during pregnancy [Recovered/Resolved]
  - Hepatocellular injury [Unknown]

NARRATIVE: CASE EVENT DATE: 20120521
